FAERS Safety Report 6910477-5 (Version None)
Quarter: 2010Q3

REPORT INFORMATION
  Report Type: 
  Country: None (occurrence: None)
  Receive Date: 20100806
  Receipt Date: 20100729
  Transmission Date: 20110219
  Serious: Yes (Death, Hospitalization)
  Sender: FDA-Public Use
  Company Number: JP-WYE-H15925510

PATIENT
  Age: 80 Year
  Sex: Female

DRUGS (13)
  1. ZOSYN [Suspect]
     Indication: PNEUMONIA ASPIRATION
     Route: 041
     Dates: start: 20100420, end: 20100429
  2. SLOW-K [Concomitant]
     Dosage: 1200 MG DAY
     Route: 048
  3. ROCEPHIN [Suspect]
     Indication: PNEUMONIA ASPIRATION
     Dosage: 2 GRAMS PER DAY
     Route: 041
     Dates: start: 20100403, end: 20100407
  4. FINIBAX [Suspect]
     Indication: PNEUMONIA ASPIRATION
     Dosage: 0.5 GRAMS PER DAY
     Route: 041
     Dates: start: 20100408, end: 20100419
  5. TAKEPRON [Suspect]
     Indication: REFLUX OESOPHAGITIS
     Dosage: 15 MG PER DAY
     Route: 048
     Dates: start: 20020101
  6. MINOCYCLINE HCL [Suspect]
     Dosage: UNKNOWN
  7. LASIX [Suspect]
     Indication: HYPERURICAEMIA
     Dosage: 20 MG PER DAY
     Route: 048
     Dates: start: 20100410, end: 20100426
  8. FRANDOL [Concomitant]
     Dosage: 40 MG PER DAY
  9. LENDORMIN [Concomitant]
     Dosage: UNKNOWN
     Route: 048
  10. RISPERDAL [Concomitant]
     Dosage: UNKNOWN
     Route: 048
  11. NOVOLIN R [Concomitant]
     Dosage: UNKNOWN
     Route: 058
  12. SERENACE [Concomitant]
     Dosage: 0.75 MG PER DAY
     Route: 048
  13. SALOBEL [Suspect]
     Indication: HYPERURICAEMIA
     Dosage: 200 MG PER DAY
     Route: 048
     Dates: start: 20100405

REACTIONS (2)
  - RENAL FAILURE [None]
  - STEVENS-JOHNSON SYNDROME [None]
